FAERS Safety Report 9216296 (Version 1)
Quarter: 2013Q2

REPORT INFORMATION
  Report Type: Spontaneous
  Country: FR (occurrence: None)
  Receive Date: 20130404
  Receipt Date: 20130404
  Transmission Date: 20140414
  Serious: Yes (Other)
  Sender: FDA-Public Use
  Company Number: DSM-2013-00372

PATIENT
  Age: 43 Year
  Sex: Female

DRUGS (2)
  1. OLMETEC (OLMESARTAN MEDOXOMIL) (TABLET) (OLMESARTAN MEDOXOMIL) [Suspect]
     Indication: HYPERTENSION
     Dosage: (1 DOSAGE FORMS, 1 IN 1 D)
     Route: 048
     Dates: start: 201010, end: 20130205
  2. ADVIL (IBUPROFEN) [Concomitant]

REACTIONS (6)
  - Rash papular [None]
  - Purpura [None]
  - Face oedema [None]
  - Periorbital oedema [None]
  - Dry skin [None]
  - Viral infection [None]
